FAERS Safety Report 16308560 (Version 1)
Quarter: 2019Q2

REPORT INFORMATION
  Report Type: Spontaneous
  Country: US (occurrence: US)
  Receive Date: 20190514
  Receipt Date: 20190514
  Transmission Date: 20190711
  Serious: Yes (Other)
  Sender: FDA-Public Use
  Company Number: US-HORIZON-RAV-0129-2019

PATIENT
  Age: 1 Month
  Sex: Male

DRUGS (3)
  1. AMMONUL [Suspect]
     Active Substance: SODIUM BENZOATE\SODIUM PHENYLACETATE
     Indication: ORNITHINE TRANSCARBAMOYLASE DEFICIENCY
  2. RAVICTI [Suspect]
     Active Substance: GLYCEROL PHENYLBUTYRATE
     Indication: ORNITHINE TRANSCARBAMOYLASE DEFICIENCY
  3. SODIUM BENZOATE [Suspect]
     Active Substance: SODIUM BENZOATE
     Indication: ORNITHINE TRANSCARBAMOYLASE DEFICIENCY

REACTIONS (2)
  - Dialysis [Unknown]
  - Metabolic acidosis [Unknown]
